FAERS Safety Report 9672333 (Version 1)
Quarter: 2013Q4

REPORT INFORMATION
  Report Type: Spontaneous
  Country: US (occurrence: US)
  Receive Date: 20131106
  Receipt Date: 20131106
  Transmission Date: 20140711
  Serious: Yes (Hospitalization, Other)
  Sender: FDA-Public Use
  Company Number: US-ELI_LILLY_AND_COMPANY-US201310009357

PATIENT
  Sex: Female

DRUGS (5)
  1. INSULIN HUMAN [Suspect]
     Indication: TYPE 2 DIABETES MELLITUS
     Dosage: UNK
     Route: 058
     Dates: start: 200604
  2. INSULIN HUMAN [Suspect]
     Indication: INSULIN RESISTANCE
  3. INSULIN HUMAN [Suspect]
     Indication: TYPE 2 DIABETES MELLITUS
     Route: 058
  4. INSULIN HUMAN [Suspect]
     Indication: INSULIN RESISTANCE
  5. NUTROPIN [Concomitant]

REACTIONS (13)
  - Renal failure [Unknown]
  - Blood potassium abnormal [Unknown]
  - Blood phosphorus abnormal [Unknown]
  - Wound infection staphylococcal [Unknown]
  - Blood glucose decreased [Unknown]
  - Pollakiuria [Unknown]
  - Blood growth hormone decreased [Unknown]
  - Scratch [Unknown]
  - Retinopathy [Unknown]
  - Hypophagia [Unknown]
  - Blood glucose abnormal [Unknown]
  - Visual acuity reduced [Unknown]
  - Wrong technique in drug usage process [Unknown]
